FAERS Safety Report 9034370 (Version 1)
Quarter: 2013Q1

REPORT INFORMATION
  Report Type: Spontaneous
  Country: US (occurrence: None)
  Receive Date: 20130111
  Receipt Date: 20130111
  Transmission Date: 20140127
  Serious: Yes (Hospitalization)
  Sender: FDA-Public Use
  Company Number: DKLU1087757

PATIENT
  Age: 13 Year
  Sex: 0

DRUGS (3)
  1. ELSPAR (ASPARAGINASE) [Suspect]
     Indication: ACUTE MYELOID LEUKAEMIA
  2. CYTARABINE (CYTARABINE) [Suspect]
     Indication: ACUTE MYELOID LEUKAEMIA
  3. CEFEPIME (CEFEPIME) [Concomitant]

REACTIONS (6)
  - Wound secretion [None]
  - Fall [None]
  - Skin necrosis [None]
  - Dyspnoea [None]
  - Pulmonary mass [None]
  - Neutropenia [None]
